FAERS Safety Report 8617208-1 (Version None)
Quarter: 2012Q3

REPORT INFORMATION
  Report Type: 
  Country: None (occurrence: None)
  Receive Date: 20120823
  Receipt Date: 20120822
  Transmission Date: 20120928
  Serious: Yes (Death)
  Sender: FDA-Public Use
  Company Number: PHHY2012US072262

PATIENT
  Age: 1 Year

DRUGS (1)
  1. TIZANIDINE HYDROCHLORIDE [Suspect]

REACTIONS (1)
  - ACCIDENTAL EXPOSURE [None]
